FAERS Safety Report 18364640 (Version 1)
Quarter: 2020Q4

REPORT INFORMATION
  Report Type: Spontaneous
  Country: HU (occurrence: HU)
  Receive Date: 20201009
  Receipt Date: 20201009
  Transmission Date: 20210114
  Serious: Yes (Other)
  Sender: FDA-Public Use
  Company Number: NVSC2020HU266943

PATIENT
  Sex: Female

DRUGS (6)
  1. AZI SANDOZ [Suspect]
     Active Substance: AZITHROMYCIN MONOHYDRATE
     Dosage: UNK
     Route: 065
  2. GYNOPHILUS [Concomitant]
     Active Substance: LACTOBACILLUS RHAMNOSUS
     Indication: PRODUCT USED FOR UNKNOWN INDICATION
     Route: 065
  3. GYNOFLOR [ESTRIOL; LACTOBACILLUS ACIDOPHILUS] [Concomitant]
     Active Substance: ESTRIOL\LACTOBACILLUS ACIDOPHILUS
     Indication: PRODUCT USED FOR UNKNOWN INDICATION
     Route: 065
  4. KLION D [Concomitant]
     Active Substance: METRONIDAZOLE\MICONAZOLE NITRATE
     Indication: PRODUCT USED FOR UNKNOWN INDICATION
     Dosage: UNK
     Route: 065
  5. LACTOFIL [Concomitant]
     Active Substance: SOAP
     Indication: PRODUCT USED FOR UNKNOWN INDICATION
     Route: 065
  6. AZI SANDOZ [Suspect]
     Active Substance: AZITHROMYCIN MONOHYDRATE
     Indication: PRODUCT USED FOR UNKNOWN INDICATION
     Dosage: UNK
     Route: 065

REACTIONS (4)
  - Maternal exposure during pregnancy [Unknown]
  - Abortion spontaneous [Unknown]
  - Vulvovaginal discomfort [Unknown]
  - Vulvovaginal pain [Unknown]
